FAERS Safety Report 10244084 (Version 1)
Quarter: 2014Q1

REPORT INFORMATION
  Report Type: Spontaneous
  Country: US (occurrence: None)
  Receive Date: 20140306
  Receipt Date: 20140306
  Transmission Date: 20141002
  Serious: Yes (Other)
  Sender: FDA-Public Use
  Company Number: 163-21880-13053261

PATIENT
  Age: 61 Year
  Sex: Male
  Weight: 108 kg

DRUGS (3)
  1. REVLIMID (LENALIDOMIDE) (25 MILLIGRAM, CAPSULES) [Suspect]
     Indication: PLASMA CELL MYELOMA
     Dosage: 25 MG, 21 IN 28 D, PO
     Route: 048
     Dates: start: 20130419
  2. DEXAMETHASONE (DEXAMETHASONE) [Concomitant]
  3. VELCADE (BORTEZOMIB) [Suspect]

REACTIONS (6)
  - Herpes zoster [None]
  - Rash [None]
  - Rash papular [None]
  - Neuropathy peripheral [None]
  - Drug dose omission [None]
  - Headache [None]
